FAERS Safety Report 25173861 (Version 1)
Quarter: 2025Q2

REPORT INFORMATION
  Report Type: Spontaneous
  Country: DE (occurrence: DE)
  Receive Date: 20250408
  Receipt Date: 20250408
  Transmission Date: 20250716
  Serious: Yes (Congenital Anomaly)
  Sender: SANDOZ
  Company Number: DE-EMB-M202310211-1

PATIENT
  Sex: Female
  Weight: 2.7 kg

DRUGS (21)
  1. AZATHIOPRINE [Suspect]
     Active Substance: AZATHIOPRINE
     Indication: Autoimmune hepatitis
     Dosage: 50 MG, Q12H
     Route: 064
     Dates: start: 202309, end: 202406
  2. AZATHIOPRINE [Suspect]
     Active Substance: AZATHIOPRINE
     Indication: Colitis ulcerative
  3. AZATHIOPRINE [Suspect]
     Active Substance: AZATHIOPRINE
     Indication: Foetal exposure during pregnancy
  4. DESLORATADINE [Suspect]
     Active Substance: DESLORATADINE
     Indication: Cholestatic pruritus
     Route: 064
     Dates: start: 202309, end: 202406
  5. DESLORATADINE [Suspect]
     Active Substance: DESLORATADINE
     Indication: Foetal exposure during pregnancy
  6. ESOMEPRAZOLE [Suspect]
     Active Substance: ESOMEPRAZOLE
     Indication: Gastritis prophylaxis
     Dosage: 20 MG, Q12H
     Route: 064
     Dates: start: 202309, end: 202406
  7. ESOMEPRAZOLE [Suspect]
     Active Substance: ESOMEPRAZOLE
     Indication: Foetal exposure during pregnancy
  8. ESOMEPRAZOLE [Suspect]
     Active Substance: ESOMEPRAZOLE
     Indication: Gastrooesophageal reflux disease
  9. ILARIS [Suspect]
     Active Substance: CANAKINUMAB
     Indication: Familial mediterranean fever
     Route: 064
     Dates: start: 202309, end: 202406
  10. ILARIS [Suspect]
     Active Substance: CANAKINUMAB
     Indication: Foetal exposure during pregnancy
  11. SULFASALAZINE [Suspect]
     Active Substance: SULFASALAZINE
     Indication: Colitis ulcerative
     Dosage: 500 MG, Q12H
     Route: 064
     Dates: start: 202309, end: 202312
  12. SULFASALAZINE [Suspect]
     Active Substance: SULFASALAZINE
     Indication: Foetal exposure during pregnancy
  13. URSODIOL [Suspect]
     Active Substance: URSODIOL
     Indication: Cholangitis sclerosing
     Dosage: 500 MG, Q12H
     Route: 064
     Dates: start: 202309, end: 202406
  14. URSODIOL [Suspect]
     Active Substance: URSODIOL
     Indication: Foetal exposure during pregnancy
  15. MISOPROSTOL [Concomitant]
     Active Substance: MISOPROSTOL
     Indication: Labour induction
     Route: 064
     Dates: start: 202405, end: 202405
  16. MISOPROSTOL [Concomitant]
     Active Substance: MISOPROSTOL
     Indication: Foetal exposure during pregnancy
  17. BOOSTRIX [Concomitant]
     Active Substance: TETANUS TOXOID, REDUCED DIPHTHERIA TOXOID AND ACELLULAR PERTUSSIS VACCINE, ADSORBED ANTIGENS
     Indication: Immunisation
     Dosage: UNK, QD
     Route: 064
  18. BOOSTRIX [Concomitant]
     Active Substance: TETANUS TOXOID, REDUCED DIPHTHERIA TOXOID AND ACELLULAR PERTUSSIS VACCINE, ADSORBED ANTIGENS
     Indication: Foetal exposure during pregnancy
  19. ENOXAPARIN SODIUM [Concomitant]
     Active Substance: ENOXAPARIN SODIUM
     Indication: Thrombosis prophylaxis
     Dosage: MATERNAL EXPOSURE DURING PREGNANCY: 40 MG, QD
     Route: 064
     Dates: start: 202309, end: 202404
  20. ENOXAPARIN SODIUM [Concomitant]
     Active Substance: ENOXAPARIN SODIUM
     Indication: Foetal exposure during pregnancy
     Dosage: MATERNAL EXPOSURE DURING PREGNANCY: 60 MG, QD
     Route: 064
     Dates: start: 202004, end: 202404
  21. FOLIC ACID [Concomitant]
     Active Substance: FOLIC ACID
     Indication: Prophylaxis of neural tube defect
     Dosage: 5.000MG QD
     Route: 064
     Dates: start: 202309, end: 202406

REACTIONS (2)
  - Atrial septal defect [Not Recovered/Not Resolved]
  - Foetal exposure during pregnancy [Unknown]

NARRATIVE: CASE EVENT DATE: 20240701
